FAERS Safety Report 6698522-6 (Version None)
Quarter: 2010Q2

REPORT INFORMATION
  Report Type: 
  Country: None (occurrence: None)
  Receive Date: 20100427
  Receipt Date: 20100416
  Transmission Date: 20101027
  Serious: Yes (Life-Threatening, Other)
  Sender: FDA-Public Use
  Company Number: JP-AMGEN-QUU407900

PATIENT
  Age: 85 Year
  Sex: Male

DRUGS (1)
  1. REGPARA [Suspect]
     Indication: HYPERPARATHYROIDISM SECONDARY
     Route: 048
     Dates: start: 20091201, end: 20100301

REACTIONS (2)
  - ARRHYTHMIA [None]
  - BLOOD CALCIUM DECREASED [None]
